FAERS Safety Report 8071592-9 (Version None)
Quarter: 2012Q1

REPORT INFORMATION
  Report Type: 
  Country: None (occurrence: None)
  Receive Date: 20120125
  Receipt Date: 20120117
  Transmission Date: 20120608
  Serious: Yes (Death, Hospitalization)
  Sender: FDA-Public Use
  Company Number: US-MPIJNJ-2012-00160

PATIENT
  Sex: Male
  Weight: 97.506 kg

DRUGS (3)
  1. DEXAMETHASONE [Suspect]
     Indication: PRODUCT USED FOR UNKNOWN INDICATION
     Dosage: 20 MG, CYCLIC
     Route: 048
  2. PERCOCET [Concomitant]
     Indication: PRODUCT USED FOR UNKNOWN INDICATION
     Dosage: UNK MG, UNK
     Route: 048
  3. VELCADE [Suspect]
     Indication: MULTIPLE MYELOMA
     Dosage: UNK
     Dates: end: 20120103

REACTIONS (4)
  - INFECTION [None]
  - PYREXIA [None]
  - DYSPNOEA [None]
  - DEATH [None]
